FAERS Safety Report 22141666 (Version 2)
Quarter: 2023Q2

REPORT INFORMATION
  Report Type: Spontaneous
  Country: US (occurrence: US)
  Receive Date: 20230327
  Receipt Date: 20230505
  Transmission Date: 20230721
  Serious: No
  Sender: FDA-Public Use
  Company Number: US-PFIZER INC-PV202300054875

PATIENT
  Age: 64 Year
  Sex: Female

DRUGS (1)
  1. XELJANZ XR [Suspect]
     Active Substance: TOFACITINIB CITRATE
     Indication: Rheumatoid arthritis
     Dosage: 11 MG, DAILY
     Route: 048
     Dates: start: 20230220, end: 20230412

REACTIONS (12)
  - Feeling hot [Unknown]
  - Night sweats [Unknown]
  - Arthralgia [Unknown]
  - Pain [Unknown]
  - Burning sensation [Unknown]
  - Musculoskeletal stiffness [Unknown]
  - Sensitivity to weather change [Unknown]
  - Gait disturbance [Unknown]
  - Movement disorder [Unknown]
  - Intentional product misuse [Unknown]
  - Malaise [Unknown]
  - Feeling abnormal [Unknown]
